FAERS Safety Report 7105594-3 (Version None)
Quarter: 2010Q4

REPORT INFORMATION
  Report Type: 
  Country: None (occurrence: None)
  Receive Date: 20101116
  Receipt Date: 20081211
  Transmission Date: 20110411
  Serious: Yes (Other)
  Sender: FDA-Public Use
  Company Number: FI-ROCHE-741346

PATIENT

DRUGS (3)
  1. XELODA [Suspect]
     Indication: COLORECTAL CANCER
     Route: 065
  2. OXALIPLATIN [Concomitant]
     Indication: COLORECTAL CANCER
  3. IRINOTECAN HCL [Concomitant]
     Indication: COLORECTAL CANCER

REACTIONS (1)
  - DISEASE PROGRESSION [None]
